FAERS Safety Report 23762004 (Version 2)
Quarter: 2024Q2

REPORT INFORMATION
  Report Type: Spontaneous
  Country: CA (occurrence: CA)
  Receive Date: 20240419
  Receipt Date: 20240509
  Transmission Date: 20240716
  Serious: Yes (Hospitalization)
  Sender: FDA-Public Use
  Company Number: CA-002147023-NVSC2024CA081505

PATIENT
  Age: 60 Year
  Sex: Male

DRUGS (3)
  1. LEQVIO [Suspect]
     Active Substance: INCLISIRAN SODIUM
     Indication: Product used for unknown indication
     Dosage: UNK
     Route: 065
  2. LEQVIO [Suspect]
     Active Substance: INCLISIRAN SODIUM
     Dosage: UNK (2ND DOSE)
     Route: 065
     Dates: start: 202310
  3. LEQVIO [Suspect]
     Active Substance: INCLISIRAN SODIUM
     Dosage: UNK (3RD DOSE)
     Route: 065
     Dates: start: 20240403

REACTIONS (4)
  - Bile duct stone [Unknown]
  - Infection [Unknown]
  - Adverse drug reaction [Unknown]
  - Arthralgia [Unknown]
